FAERS Safety Report 4509414-2 (Version None)
Quarter: 2004Q4

REPORT INFORMATION
  Report Type: 
  Country: None (occurrence: None)
  Receive Date: 20041025
  Receipt Date: 20040823
  Transmission Date: 20050328
  Serious: Yes (Life-Threatening, Hospitalization)
  Sender: FDA-Public Use
  Company Number: US-JNJFOC-20040704025

PATIENT
  Age: 55 Year
  Sex: Male
  Weight: 68.0396 kg

DRUGS (6)
  1. REMICADE [Suspect]
     Indication: CROHN'S DISEASE
     Dosage: 400 MG, INTRAVENOUS
     Route: 042
     Dates: start: 20040401
  2. REMICADE [Suspect]
     Indication: CROHN'S DISEASE
     Dosage: 400 MG, INTRAVENOUS
     Route: 042
     Dates: start: 20040526
  3. PREDNISONE [Concomitant]
  4. ASACOL [Concomitant]
  5. LASIX [Concomitant]
  6. AUGMENTIN '125' [Concomitant]

REACTIONS (4)
  - ABSCESS [None]
  - ACUTE RESPIRATORY DISTRESS SYNDROME [None]
  - PNEUMONIA [None]
  - THROMBOCYTOPENIA [None]
